FAERS Safety Report 19859567 (Version 1)
Quarter: 2021Q3

REPORT INFORMATION
  Report Type: Spontaneous
  Country: GB (occurrence: GB)
  Receive Date: 20210920
  Receipt Date: 20210920
  Transmission Date: 20211014
  Serious: Yes (Disabling)
  Sender: FDA-Public Use
  Company Number: None

PATIENT
  Age: 31 Year
  Sex: Male

DRUGS (3)
  1. DERMOVATE [Suspect]
     Active Substance: CLOBETASOL
  2. EUMOVATE [Suspect]
     Active Substance: CLOBETASONE BUTYRATE
  3. BETNOVATE [Suspect]
     Active Substance: BETAMETHASONE
     Indication: DRY SKIN

REACTIONS (2)
  - Erythema [None]
  - Steroid withdrawal syndrome [None]

NARRATIVE: CASE EVENT DATE: 20151220
